FAERS Safety Report 7444143-7 (Version None)
Quarter: 2011Q2

REPORT INFORMATION
  Report Type: 
  Country: None (occurrence: None)
  Receive Date: 20110419
  Receipt Date: 20110405
  Transmission Date: 20111010
  Serious: Yes (Other)
  Sender: FDA-Public Use
  Company Number: IDA-00498

PATIENT
  Sex: Male

DRUGS (5)
  1. ALEPSAL (ATROPA BELLADONNA EXTRACT, CAFFEINE, PHENOBARBITAL) [Suspect]
     Dosage: 150 MG DAILY ORAL FORMULATION: UNKNOWN
     Dates: start: 20000101
  2. PROPRANOLOL [Suspect]
     Dosage: 40 MG DAILY ORAL FORMULATION: UNKNOWN
     Dates: start: 20030101
  3. PHENYTOIN [Suspect]
     Dosage: 2.5 DF DAILY ORAL FORMULATION: UNKNOWN
     Dates: start: 19970101
  4. URBANYL (CLOBAZAM) [Suspect]
     Dosage: 10 MG DAILY ORAL FORMULATION: UNKNOWN
     Dates: start: 19940101
  5. PHENOBARBITAL TAB [Suspect]
     Dates: start: 19970101

REACTIONS (1)
  - OSTEONECROSIS [None]
